FAERS Safety Report 4685827-3 (Version None)
Quarter: 2005Q2

REPORT INFORMATION
  Report Type: 
  Country: None (occurrence: None)
  Receive Date: 20050609
  Receipt Date: 20050601
  Transmission Date: 20051028
  Serious: Yes (Hospitalization)
  Sender: FDA-Public Use
  Company Number: US-JNJFOC-20050500186

PATIENT
  Sex: Female
  Weight: 79.38 kg

DRUGS (7)
  1. REMICADE [Suspect]
     Route: 042
  2. REMICADE [Suspect]
     Route: 042
  3. REMICADE [Suspect]
     Indication: CROHN'S DISEASE
     Route: 042
  4. IMURAN [Concomitant]
  5. ZOFRAN [Concomitant]
  6. BENADRYL [Concomitant]
     Indication: PREMEDICATION
     Route: 049
  7. TYLENOL (CAPLET) [Concomitant]
     Indication: PREMEDICATION
     Route: 049

REACTIONS (7)
  - CHILLS [None]
  - DIARRHOEA [None]
  - HEADACHE [None]
  - INFUSION RELATED REACTION [None]
  - OESOPHAGITIS ULCERATIVE [None]
  - RASH [None]
  - VOMITING [None]
